FAERS Safety Report 19594464 (Version 1)
Quarter: 2021Q3

REPORT INFORMATION
  Report Type: Spontaneous
  Country: US (occurrence: US)
  Receive Date: 20210722
  Receipt Date: 20210722
  Transmission Date: 20211014
  Serious: Yes (Life-Threatening, Hospitalization, Other)
  Sender: FDA-Public Use
  Company Number: US-BAYER-2021-178813

PATIENT
  Age: 47 Year
  Sex: Female
  Weight: 75.5 kg

DRUGS (2)
  1. LEVOTHYROXINE. [Concomitant]
     Active Substance: LEVOTHYROXINE
  2. GADOBUTROL. [Suspect]
     Active Substance: GADOBUTROL

REACTIONS (1)
  - Acute respiratory distress syndrome [None]
